FAERS Safety Report 23580546 (Version 1)
Quarter: 2024Q1

REPORT INFORMATION
  Report Type: Spontaneous
  Country: US (occurrence: US)
  Receive Date: 20240229
  Receipt Date: 20240229
  Transmission Date: 20240410
  Serious: Yes (Other)
  Sender: FDA-Public Use
  Company Number: US-BRISTOL-MYERS SQUIBB COMPANY-2024-032982

PATIENT
  Age: 73 Year
  Sex: Male
  Weight: 60.8 kg

DRUGS (7)
  1. POMALIDOMIDE [Suspect]
     Active Substance: POMALIDOMIDE
     Indication: Plasma cell myeloma
     Dosage: DAYS 1-21 (28 DAYS)
     Route: 048
     Dates: start: 20160415, end: 20160513
  2. POMALIDOMIDE [Suspect]
     Active Substance: POMALIDOMIDE
     Dosage: DAYS 1-21 (28 DAYS)
     Route: 048
     Dates: start: 20160513, end: 20170927
  3. POMALIDOMIDE [Suspect]
     Active Substance: POMALIDOMIDE
     Dosage: DAYS 1-21 (28 DAYS)
     Route: 048
     Dates: start: 20170927, end: 20171025
  4. POMALIDOMIDE [Suspect]
     Active Substance: POMALIDOMIDE
     Dosage: DAYS 1-21 (28 DAYS)
     Route: 048
     Dates: start: 20171129, end: 20190305
  5. POMALIDOMIDE [Suspect]
     Active Substance: POMALIDOMIDE
     Dosage: DAYS 1-21 (28 DAYS)
     Route: 048
     Dates: start: 20190326, end: 20200904
  6. EMPLICITI [Concomitant]
     Active Substance: ELOTUZUMAB
     Indication: Plasma cell myeloma
     Route: 042
     Dates: start: 20190326, end: 20200904
  7. DECADRON [Concomitant]
     Active Substance: DEXAMETHASONE
     Indication: Plasma cell myeloma
     Route: 048
     Dates: start: 20190326, end: 20200904

REACTIONS (2)
  - Plasma cell myeloma [Unknown]
  - Toxicity to various agents [Unknown]
